FAERS Safety Report 7362572-7 (Version None)
Quarter: 2011Q1

REPORT INFORMATION
  Report Type: 
  Country: None (occurrence: None)
  Receive Date: 20110320
  Receipt Date: 20100908
  Transmission Date: 20110831
  Serious: Yes (Hospitalization, Other)
  Sender: FDA-Public Use
  Company Number: US-BAYER-200943895NA

PATIENT
  Sex: Female
  Weight: 71 kg

DRUGS (11)
  1. SARAFEM [Concomitant]
     Dosage: UNK
  2. PROZAC [Concomitant]
     Indication: PREMENSTRUAL SYNDROME
     Dosage: UNK UNK, QD
     Dates: start: 20030101, end: 20090101
  3. LONOX [Concomitant]
  4. SYMAX [Concomitant]
  5. YAZ [Suspect]
     Indication: PREMENSTRUAL SYNDROME
     Dosage: UNK
     Dates: start: 20070801, end: 20090501
  6. WELCHOL [Concomitant]
     Dosage: UNK UNK, QD
  7. YAZ [Suspect]
  8. YAZ [Suspect]
     Indication: ORAL CONTRACEPTION
  9. PREVALITE [COLESTYRAMINE,PHENYLALANINE] [Concomitant]
  10. UNCODEABLE ^UNCLASSIFIABLE^ [Concomitant]
  11. MULTIVITAMIN [Concomitant]
     Dosage: UNK UNK, QD

REACTIONS (9)
  - COITAL BLEEDING [None]
  - CHOLESTEROSIS [None]
  - METRORRHAGIA [None]
  - MENTAL DISORDER [None]
  - CHOLECYSTITIS CHRONIC [None]
  - ABDOMINAL PAIN UPPER [None]
  - MENOMETRORRHAGIA [None]
  - HOT FLUSH [None]
  - WEIGHT DECREASED [None]
